FAERS Safety Report 5766309-4 (Version None)
Quarter: 2008Q2

REPORT INFORMATION
  Report Type: 
  Country: None (occurrence: None)
  Receive Date: 20080611
  Receipt Date: 20080605
  Transmission Date: 20081010
  Serious: Yes (Hospitalization)
  Sender: FDA-Public Use
  Company Number: IT-MERCK-0804ITA00032

PATIENT
  Age: 15 Year
  Sex: Female

DRUGS (6)
  1. SINGULAIR [Suspect]
     Indication: ASTHMA
     Route: 048
     Dates: start: 20070901, end: 20071201
  2. SINGULAIR [Suspect]
     Route: 048
     Dates: start: 20080301, end: 20080401
  3. SINGULAIR [Suspect]
     Indication: CONJUNCTIVITIS ALLERGIC
     Route: 048
     Dates: start: 20070901, end: 20071201
  4. SINGULAIR [Suspect]
     Route: 048
     Dates: start: 20080301, end: 20080401
  5. CORTICOSTEROIDS (UNSPECIFIED) [Concomitant]
     Indication: ASTHMA
     Route: 065
  6. [THERAPY UNSPECIFIED] [Concomitant]
     Route: 065

REACTIONS (1)
  - CRANIAL NEUROPATHY [None]
